FAERS Safety Report 17975637 (Version 2)
Quarter: 2020Q3

REPORT INFORMATION
  Report Type: Spontaneous
  Country: GR (occurrence: GR)
  Receive Date: 20200702
  Receipt Date: 20200707
  Transmission Date: 20201103
  Serious: Yes (Hospitalization)
  Sender: FDA-Public Use
  Company Number: NVSC2020GR186063

PATIENT
  Age: 34 Year
  Sex: Female

DRUGS (1)
  1. AMLODIPINE [Suspect]
     Active Substance: AMLODIPINE BESYLATE
     Indication: HYPERTENSION
     Dosage: UNK
     Route: 065

REACTIONS (10)
  - Hypokalaemia [Recovering/Resolving]
  - Headache [Unknown]
  - Sinus rhythm [Unknown]
  - Electrocardiogram U wave present [Unknown]
  - Metabolic alkalosis [Unknown]
  - Mitral valve incompetence [Unknown]
  - Hypertension [Recovering/Resolving]
  - Fatigue [Unknown]
  - Cardiac murmur [Unknown]
  - Blood pressure fluctuation [Unknown]
